FAERS Safety Report 8765871 (Version 1)
Quarter: 2012Q4

REPORT INFORMATION
  Report Type: 
  Country: US (occurrence: US)
  Receive Date: 20120904
  Receipt Date: 20120904
  Transmission Date: 20130627
  Serious: Yes (Hospitalization, Disabling, Other)
  Sender: FDA-Public Use
  Company Number: US-009507513-1010USA02482

PATIENT

DRUGS (6)
  1. FOSAMAX [Suspect]
     Indication: OSTEOPOROSIS
     Dosage: 10 mg, qd
     Route: 048
     Dates: start: 19980814, end: 19990618
  2. FOSAMAX [Suspect]
     Indication: OSTEOPOROSIS PROPHYLAXIS
     Dosage: 5 mg, qd
     Route: 048
     Dates: start: 20001003, end: 20030717
  3. FOSAMAX [Suspect]
     Dosage: 70 mg, QW
     Route: 048
     Dates: start: 20030717, end: 20081126
  4. FOSAMAX [Suspect]
     Indication: OSTEOPOROSIS
     Dosage: 70 mg, qw
     Route: 048
     Dates: start: 20081126, end: 20100601
  5. FOSAMAX [Suspect]
     Indication: OSTEOPENIA
  6. SYNTHROID [Concomitant]
     Indication: HYPOTHYROIDISM
     Route: 048
     Dates: start: 199807

REACTIONS (30)
  - Femur fracture [Unknown]
  - Low turnover osteopathy [Unknown]
  - Breast prosthesis removal [Unknown]
  - Fracture delayed union [Unknown]
  - Adverse drug reaction [Unknown]
  - Sinusitis [Unknown]
  - Upper respiratory tract infection [Unknown]
  - Seborrhoeic keratosis [Unknown]
  - Back pain [Unknown]
  - Bronchitis [Unknown]
  - Rhinitis allergic [Unknown]
  - Sinusitis [Unknown]
  - Foot fracture [Unknown]
  - Foot fracture [Unknown]
  - Chronic sinusitis [Unknown]
  - Eustachian tube dysfunction [Unknown]
  - Otitis externa [Recovered/Resolved]
  - Breast cyst [Unknown]
  - Ovarian cyst [Unknown]
  - Uterine disorder [Unknown]
  - Ovarian disorder [Unknown]
  - Endodontic procedure [Unknown]
  - Tooth extraction [Unknown]
  - Tooth repair [Unknown]
  - Dental necrosis [Unknown]
  - Tooth extraction [Unknown]
  - Dental caries [Unknown]
  - Periodontal disease [Unknown]
  - Intramedullary rod insertion [Unknown]
  - Gingival recession [Not Recovered/Not Resolved]
